FAERS Safety Report 18431619 (Version 1)
Quarter: 2020Q4

REPORT INFORMATION
  Report Type: Spontaneous
  Country: US (occurrence: US)
  Receive Date: 20201027
  Receipt Date: 20201027
  Transmission Date: 20210114
  Serious: No
  Sender: FDA-Public Use
  Company Number: US-SOFGEN PHARMACEUTICALS, LLC-2093148

PATIENT
  Age: 66 Year
  Sex: Female
  Weight: 64.86 kg

DRUGS (5)
  1. SINGULAIR [Concomitant]
     Active Substance: MONTELUKAST SODIUM
  2. PROGESTERONE. [Suspect]
     Active Substance: PROGESTERONE
     Indication: HORMONE THERAPY
     Route: 048
     Dates: start: 20201001, end: 20201021
  3. ASPIRIN. [Concomitant]
     Active Substance: ASPIRIN
  4. ESTROGENS [Concomitant]
     Active Substance: ESTROGENS
  5. METOPROLOL. [Concomitant]
     Active Substance: METOPROLOL

REACTIONS (2)
  - Anxiety [Recovered/Resolved]
  - Sleep disorder [Recovered/Resolved]

NARRATIVE: CASE EVENT DATE: 20201001
